FAERS Safety Report 24536819 (Version 1)
Quarter: 2024Q4

REPORT INFORMATION
  Report Type: Spontaneous
  Country: US (occurrence: US)
  Receive Date: 20241022
  Receipt Date: 20241022
  Transmission Date: 20250114
  Serious: No
  Sender: SANOFI AVENTIS
  Company Number: US-SA-2024SA301798

PATIENT
  Age: 67 Year
  Sex: Female
  Weight: 55.45 kg

DRUGS (1)
  1. DUPIXENT [Suspect]
     Active Substance: DUPILUMAB
     Indication: Ill-defined disorder
     Dosage: 600 MG, 1X
     Route: 058
     Dates: start: 20241001, end: 20241001

REACTIONS (4)
  - Dyspnoea [Recovering/Resolving]
  - Dysphagia [Unknown]
  - Oropharyngeal pain [Unknown]
  - Urticaria [Recovering/Resolving]

NARRATIVE: CASE EVENT DATE: 20241001
